FAERS Safety Report 14932490 (Version 1)
Quarter: 2018Q2

REPORT INFORMATION
  Report Type: Spontaneous
  Country: PT (occurrence: PT)
  Receive Date: 20180524
  Receipt Date: 20180524
  Transmission Date: 20180711
  Serious: Yes (Death)
  Sender: FDA-Public Use
  Company Number: PT-TAKEDA-2018TEU003388

PATIENT
  Age: 52 Year
  Sex: Female

DRUGS (1)
  1. TACHOSIL [Suspect]
     Active Substance: FIBRINOGEN HUMAN\THROMBIN HUMAN
     Indication: HAEMOSTASIS
     Dosage: UNK
     Route: 065

REACTIONS (2)
  - Shock haemorrhagic [Fatal]
  - Drug ineffective [Fatal]
